FAERS Safety Report 5457323-7 (Version None)
Quarter: 2007Q3

REPORT INFORMATION
  Report Type: 
  Country: None (occurrence: None)
  Receive Date: 20070918
  Receipt Date: 20070220
  Transmission Date: 20080115
  Serious: No
  Sender: FDA-Public Use
  Company Number: US-ASTRAZENECA-2007UW03318

PATIENT
  Age: 60 Year
  Sex: Female
  Weight: 72.6 kg

DRUGS (4)
  1. SEROQUEL [Suspect]
     Indication: BIPOLAR DISORDER
     Route: 048
  2. SEROQUEL [Suspect]
     Dosage: CUT TABLET IN HALF UNTIL 23-FEB-2007
     Route: 048
  3. LITHIUM CARBONATE [Concomitant]
  4. ZOLOFT [Concomitant]

REACTIONS (8)
  - ANOREXIA [None]
  - APATHY [None]
  - FEELING ABNORMAL [None]
  - FEELING HOT [None]
  - INSOMNIA [None]
  - MALAISE [None]
  - PARAESTHESIA [None]
  - VISION BLURRED [None]
